FAERS Safety Report 12841887 (Version 3)
Quarter: 2017Q1

REPORT INFORMATION
  Report Type: Report from Study
  Country: US (occurrence: US)
  Receive Date: 20161012
  Receipt Date: 20170222
  Transmission Date: 20170428
  Serious: Yes (Other)
  Sender: FDA-Public Use
  Company Number: US-AMGEN-USASL2016140248

PATIENT
  Age: 57 Year
  Sex: Female

DRUGS (3)
  1. ENBREL [Suspect]
     Active Substance: ETANERCEPT
     Indication: PALINDROMIC RHEUMATISM
     Dosage: UNK
     Route: 065
     Dates: start: 201606, end: 2016
  2. METHOTREXATE. [Suspect]
     Active Substance: METHOTREXATE
     Indication: PRODUCT USED FOR UNKNOWN INDICATION
     Dosage: UNK
     Route: 065
  3. ENBREL [Suspect]
     Active Substance: ETANERCEPT
     Indication: RHEUMATOID ARTHRITIS
     Dosage: UNK
     Route: 065

REACTIONS (16)
  - Off label use [Unknown]
  - Rheumatoid arthritis [Unknown]
  - Rhinorrhoea [Not Recovered/Not Resolved]
  - Sinusitis [Unknown]
  - Abdominal discomfort [Unknown]
  - Malaise [Unknown]
  - Infection [Unknown]
  - Disability [Not Recovered/Not Resolved]
  - Lower respiratory tract infection fungal [Unknown]
  - Bone pain [Not Recovered/Not Resolved]
  - Chronic obstructive pulmonary disease [Unknown]
  - Mobility decreased [Unknown]
  - Arthritis [Unknown]
  - Fibromyalgia [Not Recovered/Not Resolved]
  - Muscle spasms [Unknown]
  - Pain [Unknown]

NARRATIVE: CASE EVENT DATE: 2016
